FAERS Safety Report 20261007 (Version 1)
Quarter: 2021Q4

REPORT INFORMATION
  Report Type: Spontaneous
  Country: US (occurrence: US)
  Receive Date: 20211230
  Receipt Date: 20211230
  Transmission Date: 20220304
  Serious: No
  Sender: FDA-Public Use
  Company Number: US-SA-SAC20211227000515

PATIENT
  Age: 34 Year
  Sex: Female

DRUGS (6)
  1. KEVZARA [Suspect]
     Active Substance: SARILUMAB
     Indication: Rheumatoid arthritis
     Dosage: 200 MG/ML, QOW
     Route: 058
     Dates: start: 20211123
  2. BIOTIN [Concomitant]
     Active Substance: BIOTIN
  3. FERRALET [FERROUS GLUCONATE] [Concomitant]
  4. FLONASE ALLERGY RELIEF [Concomitant]
     Active Substance: FLUTICASONE PROPIONATE
     Dosage: UNK
  5. IRON [Concomitant]
     Active Substance: IRON
  6. MICONAZOLE [Concomitant]
     Active Substance: MICONAZOLE

REACTIONS (1)
  - Injection site mass [Unknown]

NARRATIVE: CASE EVENT DATE: 20211221
